FAERS Safety Report 9376507 (Version 2)
Quarter: 2013Q3

REPORT INFORMATION
  Report Type: Spontaneous
  Country: US (occurrence: US)
  Receive Date: 20130701
  Receipt Date: 20130709
  Transmission Date: 20140515
  Serious: Yes (Death, Other)
  Sender: FDA-Public Use
  Company Number: US-JNJFOC-20130612952

PATIENT
  Sex: Female

DRUGS (2)
  1. DOXORUBICIN [Suspect]
     Indication: BREAST CANCER
     Route: 042
  2. CYCLOPHOSPHAMIDE [Suspect]
     Indication: BREAST CANCER
     Route: 042

REACTIONS (18)
  - Breast cancer recurrent [Unknown]
  - Death [Fatal]
  - Gastric cancer [Fatal]
  - Cervix carcinoma [Fatal]
  - Cerebrovascular accident [Fatal]
  - Anaemia [Unknown]
  - Neutropenia [Unknown]
  - Febrile neutropenia [Unknown]
  - Asthenia [Unknown]
  - Infection [Unknown]
  - Nausea [Unknown]
  - Pyrexia [Unknown]
  - Oedema [Unknown]
  - Myalgia [Unknown]
  - Arthralgia [Unknown]
  - Stomatitis [Unknown]
  - Vomiting [Unknown]
  - Phlebitis [Unknown]
